FAERS Safety Report 19295706 (Version 1)
Quarter: 2021Q2

REPORT INFORMATION
  Report Type: Spontaneous
  Country: US (occurrence: US)
  Receive Date: 20210524
  Receipt Date: 20210524
  Transmission Date: 20210717
  Serious: Yes (Hospitalization, Other)
  Sender: FDA-Public Use
  Company Number: US-PFIZER INC-2021527979

PATIENT
  Age: 63 Year
  Sex: Female
  Weight: 74.84 kg

DRUGS (2)
  1. TIKOSYN [Suspect]
     Active Substance: DOFETILIDE
     Indication: ATRIAL FIBRILLATION
     Dosage: 250 UG, 2X/DAY
     Dates: start: 20170206
  2. VISTARIL [Suspect]
     Active Substance: HYDROXYZINE PAMOATE
     Indication: HYPERSENSITIVITY
     Dosage: 100MG EVERY NIGHT (QHS)

REACTIONS (4)
  - Cardiac arrest [Unknown]
  - Electrocardiogram QT prolonged [Unknown]
  - Prescribed overdose [Unknown]
  - Creatinine renal clearance decreased [Unknown]

NARRATIVE: CASE EVENT DATE: 20170206
